FAERS Safety Report 7210177-0 (Version None)
Quarter: 2011Q1

REPORT INFORMATION
  Report Type: 
  Country: None (occurrence: None)
  Receive Date: 20110105
  Receipt Date: 20101231
  Transmission Date: 20110831
  Serious: Yes (Hospitalization)
  Sender: FDA-Public Use
  Company Number: US-AMGEN-USACT2010012847

PATIENT

DRUGS (4)
  1. DOCETAXEL [Suspect]
     Dosage: 40 MG/M2, Q2WK
     Route: 042
     Dates: start: 20101004
  2. COUMADIN [Suspect]
     Dosage: UNK UNK, QD
  3. PANITUMUMAB [Suspect]
     Indication: OESOPHAGEAL ADENOCARCINOMA
     Dosage: 6 MG/KG, Q2WK
     Route: 042
     Dates: start: 20100728
  4. CISPLATIN [Suspect]
     Indication: OESOPHAGEAL ADENOCARCINOMA
     Dosage: 400 MG/M2, UNK
     Route: 042
     Dates: start: 20101004

REACTIONS (10)
  - DEHYDRATION [None]
  - WHITE BLOOD CELL COUNT DECREASED [None]
  - HYPOCALCAEMIA [None]
  - HYPOMAGNESAEMIA [None]
  - NAUSEA [None]
  - INTERNATIONAL NORMALISED RATIO INCREASED [None]
  - NEUTROPHIL COUNT DECREASED [None]
  - GASTROINTESTINAL HAEMORRHAGE [None]
  - HYPOKALAEMIA [None]
  - LYMPHOCYTE COUNT DECREASED [None]
